FAERS Safety Report 5677127-X (Version None)
Quarter: 2008Q1

REPORT INFORMATION
  Report Type: 
  Country: None (occurrence: None)
  Receive Date: 20080324
  Receipt Date: 20080313
  Transmission Date: 20080703
  Serious: Yes (Other)
  Sender: FDA-Public Use
  Company Number: HQWYE195316JUL04

PATIENT
  Sex: Female
  Weight: 45.4 kg

DRUGS (13)
  1. PREMPRO [Suspect]
     Indication: HORMONE REPLACEMENT THERAPY
  2. PREMPRO [Suspect]
     Indication: HOT FLUSH
  3. PREMPRO [Suspect]
     Indication: NIGHT SWEATS
  4. PREMPRO [Suspect]
     Indication: CRYING
  5. ESTRACE [Suspect]
     Indication: HOT FLUSH
  6. ESTRACE [Suspect]
     Indication: NIGHT SWEATS
  7. ESTRACE [Suspect]
     Indication: CRYING
  8. PROVERA [Suspect]
     Indication: HOT FLUSH
  9. PROVERA [Suspect]
     Indication: NIGHT SWEATS
  10. PROVERA [Suspect]
     Indication: CRYING
  11. PREMARIN [Suspect]
     Indication: HOT FLUSH
  12. PREMARIN [Suspect]
     Indication: NIGHT SWEATS
  13. PREMARIN [Suspect]
     Indication: CRYING

REACTIONS (1)
  - BREAST CANCER METASTATIC [None]
